FAERS Safety Report 7530648-7 (Version None)
Quarter: 2011Q2

REPORT INFORMATION
  Report Type: 
  Country: None (occurrence: None)
  Receive Date: 20110607
  Receipt Date: 20110601
  Transmission Date: 20111010
  Serious: Yes (Other)
  Sender: FDA-Public Use
  Company Number: US-ABBOTT-11P-163-0730222-00

PATIENT
  Age: 20 Year
  Sex: Female
  Weight: 54.48 kg

DRUGS (2)
  1. LUPRON DEPOT [Suspect]
     Indication: TISSUE ADHESION PROPHYLAXIS
     Dates: start: 20110101
  2. CELEXA [Concomitant]
     Indication: DEPRESSION
     Dates: start: 20110501

REACTIONS (1)
  - HYPERSENSITIVITY [None]
